FAERS Safety Report 9048991 (Version 2)
Quarter: 2013Q3

REPORT INFORMATION
  Report Type: Spontaneous
  Country: ZA (occurrence: None)
  Receive Date: 20130117
  Receipt Date: 20130705
  Transmission Date: 20140515
  Serious: Yes (Other)
  Sender: FDA-Public Use
  Company Number: ENTC2013-0012

PATIENT
  Age: 67 Year
  Sex: Male

DRUGS (5)
  1. STALEVO [Suspect]
     Indication: PARKINSON^S DISEASE
     Dosage: 150/75/200 MG,  (1 DOSAGE FORM, 3 IN 1 D)
     Route: 048
     Dates: start: 20130105
  2. ADCO-SIMVASTATIN [Concomitant]
  3. OMEZ [Concomitant]
  4. CALCIUM CARBONATE [Concomitant]
  5. STRESS AWAY [Concomitant]

REACTIONS (7)
  - Wrong technique in drug usage process [None]
  - Feeling abnormal [None]
  - Dissociation [None]
  - Altered state of consciousness [None]
  - Abdominal discomfort [None]
  - Dyspnoea [None]
  - Blepharospasm [None]
